FAERS Safety Report 10612559 (Version 1)
Quarter: 2014Q4

REPORT INFORMATION
  Report Type: Spontaneous
  Country: US (occurrence: US)
  Receive Date: 20141127
  Receipt Date: 20141127
  Transmission Date: 20150529
  Serious: No
  Sender: FDA-Public Use
  Company Number: US-BIOGENIDEC-2014BI123286

PATIENT
  Age: 54 Year
  Sex: Female

DRUGS (3)
  1. TECFIDERA [Suspect]
     Active Substance: DIMETHYL FUMARATE
     Indication: MULTIPLE SCLEROSIS
     Route: 048
     Dates: start: 20141107, end: 20141117
  2. TECFIDERA [Suspect]
     Active Substance: DIMETHYL FUMARATE
     Indication: MULTIPLE SCLEROSIS
     Route: 048
     Dates: start: 20141031, end: 20141106
  3. AVONEX [Concomitant]
     Active Substance: INTERFERON BETA-1A
     Route: 030

REACTIONS (12)
  - Peripheral swelling [Recovered/Resolved]
  - General symptom [Recovered/Resolved]
  - Insomnia [Recovered/Resolved]
  - Fear of falling [Unknown]
  - Fall [Recovered/Resolved]
  - Asthenia [Recovered/Resolved]
  - Dizziness [Recovered/Resolved]
  - Feeding disorder [Recovered/Resolved]
  - Feeling hot [Recovered/Resolved]
  - Eye swelling [Unknown]
  - Swelling face [Recovered/Resolved]
  - Flushing [Recovered/Resolved]

NARRATIVE: CASE EVENT DATE: 2014
